FAERS Safety Report 13604082 (Version 1)
Quarter: 2017Q2

REPORT INFORMATION
  Report Type: Spontaneous
  Country: US (occurrence: US)
  Receive Date: 20170601
  Receipt Date: 20170601
  Transmission Date: 20170830
  Serious: Yes (Other)
  Sender: FDA-Public Use
  Company Number: None

PATIENT
  Sex: Male
  Weight: 72 kg

DRUGS (4)
  1. REVLIMID [Suspect]
     Active Substance: LENALIDOMIDE
     Indication: PLASMA CELL MYELOMA
     Dosage: OTHER FREQUENCY:DAILY 3 WKS/4WKS;?
     Route: 048
     Dates: start: 20161122, end: 20170512
  2. VELCADE [Concomitant]
     Active Substance: BORTEZOMIB
  3. DARATUMUMAB [Concomitant]
     Active Substance: DARATUMUMAB
  4. VENCLEXTA [Concomitant]
     Active Substance: VENETOCLAX

REACTIONS (1)
  - Pregnancy of partner [None]
